FAERS Safety Report 7269556-8 (Version None)
Quarter: 2011Q1

REPORT INFORMATION
  Report Type: 
  Country: None (occurrence: None)
  Receive Date: 20110124
  Receipt Date: 20101231
  Transmission Date: 20110831
  Serious: Yes (Death)
  Sender: FDA-Public Use
  Company Number: AUR-APL-2011-00024

PATIENT
  Age: 31 Year
  Sex: Female

DRUGS (5)
  1. ALPRAZOLAM TABLET [Concomitant]
     Dosage: -ORAL
     Route: 048
  2. LAMOTRIGINE [Suspect]
     Dosage: -ORAL
     Route: 048
  3. TRAZODONE [Suspect]
     Dosage: -ORAL
     Route: 048
  4. ZOLPIDEM [Suspect]
     Dosage: -ORAL
     Route: 048
  5. METHADONE [Suspect]
     Dosage: -ORAL
     Route: 048

REACTIONS (4)
  - CARDIAC ARREST [None]
  - DRUG ABUSE [None]
  - TOXICITY TO VARIOUS AGENTS [None]
  - RESPIRATORY ARREST [None]
